FAERS Safety Report 6153508-5 (Version None)
Quarter: 2009Q2

REPORT INFORMATION
  Report Type: 
  Country: None (occurrence: None)
  Receive Date: 20090413
  Receipt Date: 20090403
  Transmission Date: 20091009
  Serious: Yes (Hospitalization, Other)
  Sender: FDA-Public Use
  Company Number: PHEH2006US10898

PATIENT
  Sex: Female

DRUGS (3)
  1. ZOMETA [Suspect]
     Indication: HYPERCALCAEMIA OF MALIGNANCY
     Dosage: UNK
     Dates: start: 20020101, end: 20050601
  2. TAMOXIFEN CITRATE [Concomitant]
     Dosage: 20 MG, QD
  3. TAXOTERE [Concomitant]

REACTIONS (18)
  - ANAEMIA [None]
  - ANXIETY [None]
  - BONE DISORDER [None]
  - GINGIVAL RECESSION [None]
  - HEPATIC LESION [None]
  - IMPAIRED HEALING [None]
  - INJURY [None]
  - LUNG NEOPLASM [None]
  - METASTASES TO BONE [None]
  - METASTASES TO LUNG [None]
  - MOUTH CYST [None]
  - MOUTH ULCERATION [None]
  - ORAL CAVITY FISTULA [None]
  - OSTEOMYELITIS [None]
  - OSTEONECROSIS [None]
  - PAIN [None]
  - THROMBOCYTOPENIA [None]
  - TOOTH EXTRACTION [None]
